FAERS Safety Report 8616904 (Version 3)
Quarter: 2012Q4

REPORT INFORMATION
  Report Type: Report from Study
  Country: JP (occurrence: JP)
  Receive Date: 20120615
  Receipt Date: 20120911
  Transmission Date: 20130627
  Serious: Yes (Hospitalization)
  Sender: FDA-Public Use
  Company Number: PHHY2012JP029317

PATIENT
  Age: 55 Year
  Sex: Male
  Weight: 73 kg

DRUGS (14)
  1. ICL670A [Suspect]
     Indication: IRON OVERLOAD
     Dosage: 1000 mg, daily
     Route: 048
     Dates: start: 20100414, end: 20100720
  2. ICL670A [Suspect]
     Dosage: 1500 mg, daily
     Route: 048
     Dates: start: 20100721, end: 20110414
  3. BAKTAR [Concomitant]
     Indication: PROPHYLAXIS
     Dosage: 1 DF, UNK
     Route: 048
     Dates: start: 20081016
  4. BIOFERMIN [Concomitant]
     Dosage: 6 mg, UNK
     Route: 048
     Dates: start: 20090903
  5. PENTASA [Concomitant]
     Dosage: 3 g, UNK
     Route: 048
     Dates: start: 20090903
  6. ELENTAL [Concomitant]
     Dosage: 320 g, UNK
     Route: 048
     Dates: start: 20091115, end: 20110413
  7. DAIO-KANZO-TO [Concomitant]
     Dosage: 7.5 g, UNK
     Route: 048
     Dates: start: 20100415, end: 20100921
  8. FIRSTCIN [Concomitant]
     Dosage: 4 g, UNK
     Dates: start: 20100514
  9. FIRSTCIN [Concomitant]
     Dosage: 4 g, UNK
  10. FIRSTCIN [Concomitant]
     Dosage: 4 g, UNK
  11. FIRSTCIN [Concomitant]
     Dosage: 4 g, UNK
  12. FIRSTCIN [Concomitant]
     Dosage: 4 g, UNK
  13. ADONA [Concomitant]
     Dosage: 50 mg, UNK
     Dates: start: 20110212, end: 20110219
  14. MAXIPIME [Concomitant]
     Dosage: 4 g, UNK
     Dates: start: 20110228, end: 20110306

REACTIONS (5)
  - Diarrhoea [Recovering/Resolving]
  - Haematemesis [Recovering/Resolving]
  - Renal neoplasm [Not Recovered/Not Resolved]
  - Mouth haemorrhage [Recovering/Resolving]
  - Serum ferritin increased [Unknown]
